FAERS Safety Report 9017439 (Version 1)
Quarter: 2013Q1

REPORT INFORMATION
  Report Type: Spontaneous
  Country: FR (occurrence: FR)
  Receive Date: 20130117
  Receipt Date: 20130117
  Transmission Date: 20140127
  Serious: Yes (Other)
  Sender: FDA-Public Use
  Company Number: FR-ASTRAZENECA-2013SE02331

PATIENT
  Age: 13276 Day
  Sex: Female

DRUGS (3)
  1. XEROQUEL [Suspect]
     Route: 048
     Dates: start: 20120914, end: 20120914
  2. XEROQUEL [Suspect]
     Route: 048
  3. XEROQUEL [Suspect]
     Route: 048
     Dates: start: 20120915

REACTIONS (3)
  - Skin oedema [Unknown]
  - Hypotension [Unknown]
  - Incorrect dose administered [Unknown]
